FAERS Safety Report 17443582 (Version 1)
Quarter: 2020Q1

REPORT INFORMATION
  Report Type: Spontaneous
  Country: US (occurrence: US)
  Receive Date: 20200220
  Receipt Date: 20200220
  Transmission Date: 20200409
  Serious: Yes (Disabling)
  Sender: FDA-Public Use
  Company Number: None

PATIENT
  Age: 39 Year
  Sex: Female
  Weight: 46.35 kg

DRUGS (2)
  1. LEVOTHYROXIN 88MCG OLIVE GREEN OBLONG GG334 [Suspect]
     Active Substance: LEVOTHYROXINE SODIUM
     Indication: HYPOTHYROIDISM
     Dosage: ?          QUANTITY:1 TABLET(S);?
     Route: 048
     Dates: start: 20191007, end: 20200210
  2. THYROID MEDICATION [Concomitant]
     Active Substance: UNSPECIFIED INGREDIENT

REACTIONS (8)
  - Pain [None]
  - Muscle spasms [None]
  - Asthenia [None]
  - Loss of personal independence in daily activities [None]
  - Limb discomfort [None]
  - Blood thyroid stimulating hormone decreased [None]
  - Product substitution issue [None]
  - Fatigue [None]

NARRATIVE: CASE EVENT DATE: 20191216
